FAERS Safety Report 12613846 (Version 3)
Quarter: 2016Q4

REPORT INFORMATION
  Report Type: Spontaneous
  Country: US (occurrence: US)
  Receive Date: 20160802
  Receipt Date: 20161214
  Transmission Date: 20170207
  Serious: No
  Sender: FDA-Public Use
  Company Number: US-PFIZER INC-2016352769

PATIENT
  Age: 74 Year
  Sex: Female
  Weight: 63.5 kg

DRUGS (13)
  1. ATENOLOL. [Concomitant]
     Active Substance: ATENOLOL
     Dosage: UNK
     Dates: start: 2000
  2. LETROZOLE. [Concomitant]
     Active Substance: LETROZOLE
     Dosage: UNK
     Dates: start: 2012
  3. AMLODIPINE/BENAZEPRIL [Concomitant]
     Active Substance: AMLODIPINE BESYLATE\BENAZEPRIL HYDROCHLORIDE
     Indication: CARDIAC DISORDER
     Dosage: 10/20 MG, ONCE DAILY
     Route: 048
     Dates: start: 2000
  4. AMLODIPINE/BENAZEPRIL [Concomitant]
     Active Substance: AMLODIPINE BESYLATE\BENAZEPRIL HYDROCHLORIDE
     Dosage: UNK
     Dates: start: 2000
  5. IBRANCE [Suspect]
     Active Substance: PALBOCICLIB
     Dosage: 75 MG, 1X/DAY (ONCE DAILY)
     Dates: start: 20160606
  6. ALPRAZOLAM. [Concomitant]
     Active Substance: ALPRAZOLAM
     Indication: SLEEP DISORDER
     Dosage: 1 MG, UNK(ONE AND A HALF TABLETS AT NIGHT  )
     Dates: start: 1996
  7. IBRANCE [Suspect]
     Active Substance: PALBOCICLIB
     Dosage: 100 MG, CYCLIC (ONCE A DAY IN THE MORNING FOR 21 DAYS, OFF 7 DAYS)
     Route: 048
     Dates: start: 20160704
  8. LETROZOLE. [Concomitant]
     Active Substance: LETROZOLE
     Indication: BREAST CANCER RECURRENT
     Dosage: 2.5 MG, ONCE DAILY
     Route: 048
     Dates: start: 2012
  9. ATENOLOL. [Concomitant]
     Active Substance: ATENOLOL
     Indication: CARDIAC DISORDER
     Dosage: 25 MG, ONCE DAILY
     Dates: start: 2000
  10. ASPIRIN. [Concomitant]
     Active Substance: ASPIRIN
     Indication: CARDIAC DISORDER
     Dosage: 325 MG, ONCE DAILY
     Dates: start: 2000
  11. IBRANCE [Suspect]
     Active Substance: PALBOCICLIB
     Dosage: 75 MG, DAILY
     Route: 048
     Dates: start: 201606
  12. IBRANCE [Suspect]
     Active Substance: PALBOCICLIB
     Indication: BREAST CANCER RECURRENT
     Dosage: 125 MG, CYCLIC (ONCE A DAY IN THE MORNING FOR 21 DAYS, OFF 7 DAYS )
     Route: 048
     Dates: start: 20160606
  13. ALPRAZOLAM. [Concomitant]
     Active Substance: ALPRAZOLAM
     Dosage: UNK
     Dates: start: 1996

REACTIONS (25)
  - Red blood cell count decreased [Not Recovered/Not Resolved]
  - Mean cell volume increased [Unknown]
  - Nausea [Not Recovered/Not Resolved]
  - Feeling cold [Not Recovered/Not Resolved]
  - Product label confusion [Unknown]
  - Feeding disorder [Unknown]
  - Neutrophil count abnormal [Recovered/Resolved]
  - Haemoglobin decreased [Unknown]
  - Alopecia [Not Recovered/Not Resolved]
  - White blood cell count decreased [Recovering/Resolving]
  - Eating disorder [Not Recovered/Not Resolved]
  - Weight decreased [Not Recovered/Not Resolved]
  - Platelet count decreased [Unknown]
  - Fatigue [Not Recovered/Not Resolved]
  - Dizziness [Not Recovered/Not Resolved]
  - Haematocrit decreased [Unknown]
  - Abdominal discomfort [Not Recovered/Not Resolved]
  - Gastrointestinal motility disorder [Not Recovered/Not Resolved]
  - Tremor [Recovered/Resolved]
  - Nasopharyngitis [Recovering/Resolving]
  - Somnolence [Unknown]
  - Mean cell haemoglobin concentration abnormal [Unknown]
  - Headache [Not Recovered/Not Resolved]
  - Chills [Recovered/Resolved]
  - Mobility decreased [Unknown]

NARRATIVE: CASE EVENT DATE: 201606
